FAERS Safety Report 7204636-4 (Version None)
Quarter: 2010Q4

REPORT INFORMATION
  Report Type: 
  Country: None (occurrence: None)
  Receive Date: 20101230
  Receipt Date: 20101228
  Transmission Date: 20110411
  Serious: Yes (Life-Threatening)
  Sender: FDA-Public Use
  Company Number: JP-B.I. PHARMACEUTICALS,INC./RIDGEFIELD-2010-BP-14343YA

PATIENT
  Sex: Male

DRUGS (8)
  1. HARNAL (TAMSULOSIN) ORODISPERSABLE CR [Suspect]
     Indication: POLLAKIURIA
     Route: 048
     Dates: end: 20090119
  2. LIPITOR [Suspect]
     Indication: DYSLIPIDAEMIA
     Route: 048
     Dates: end: 20090119
  3. LIPITOR [Suspect]
     Route: 048
  4. OTC SINUS DRUG [Suspect]
     Indication: RHINITIS
     Route: 048
     Dates: start: 20100119, end: 20100119
  5. ASPIRIN [Concomitant]
     Route: 048
     Dates: end: 20090119
  6. CONIEL (BENIDIPINE HYDROCHLORIDE) [Concomitant]
     Route: 048
     Dates: end: 20090119
  7. ZESTRIL [Concomitant]
     Route: 048
     Dates: end: 20090119
  8. ALLOPURINOL [Concomitant]
     Route: 048
     Dates: end: 20090119

REACTIONS (1)
  - RHABDOMYOLYSIS [None]
